FAERS Safety Report 7069344-1 (Version None)
Quarter: 2010Q4

REPORT INFORMATION
  Report Type: 
  Country: None (occurrence: None)
  Receive Date: 20101028
  Receipt Date: 20101025
  Transmission Date: 20110411
  Serious: Yes (Other)
  Sender: FDA-Public Use
  Company Number: PHHY2010US56799

PATIENT
  Sex: Female

DRUGS (2)
  1. EXTAVIA [Suspect]
     Indication: MULTIPLE SCLEROSIS
     Dosage: 0.25 MG, QOD
     Route: 058
     Dates: start: 20100707
  2. CELEBREX [Concomitant]
     Indication: ARTHRITIS
     Dosage: UNK

REACTIONS (6)
  - BACK PAIN [None]
  - BALANCE DISORDER [None]
  - DEPRESSION [None]
  - DRUG INEFFECTIVE [None]
  - FALL [None]
  - FEELING OF BODY TEMPERATURE CHANGE [None]
